FAERS Safety Report 6937352-4 (Version None)
Quarter: 2010Q3

REPORT INFORMATION
  Report Type: 
  Country: None (occurrence: None)
  Receive Date: 20100823
  Receipt Date: 20100812
  Transmission Date: 20110219
  Serious: Yes (Hospitalization, Other)
  Sender: FDA-Public Use
  Company Number: AT-GILEAD-2010-0030552

PATIENT
  Sex: Male
  Weight: 58.5 kg

DRUGS (5)
  1. VIREAD [Suspect]
     Indication: HIV INFECTION
     Dates: start: 20011211
  2. VIDEX [Concomitant]
     Indication: HIV INFECTION
     Route: 048
     Dates: start: 20030219, end: 20040813
  3. VIRAMUNE [Concomitant]
     Indication: HIV INFECTION
     Route: 048
     Dates: start: 20010202, end: 20040813
  4. KALETRA [Concomitant]
     Indication: HIV INFECTION
     Route: 048
     Dates: start: 20010202, end: 20040813
  5. FUZEON [Concomitant]
     Indication: HIV INFECTION
     Route: 058
     Dates: start: 20030225, end: 20040813

REACTIONS (3)
  - BONE MARROW OEDEMA [None]
  - FANCONI SYNDROME ACQUIRED [None]
  - NEPHROGENIC DIABETES INSIPIDUS [None]
